FAERS Safety Report 5757418-4 (Version None)
Quarter: 2008Q2

REPORT INFORMATION
  Report Type: 
  Country: None (occurrence: None)
  Receive Date: 20080529
  Receipt Date: 20080515
  Transmission Date: 20081010
  Serious: Yes (Hospitalization)
  Sender: FDA-Public Use
  Company Number: E3810-01874-SPO-AU

PATIENT
  Age: 81 Year
  Sex: Female
  Weight: 70 kg

DRUGS (6)
  1. RABEPRAZOLE SODIUM [Suspect]
     Dosage: 40 MG, ORAL
     Route: 048
  2. ASPIRIN [Suspect]
     Dosage: 100  MG, ORAL
     Route: 048
  3. ATORVASTATIN CALCIUM [Suspect]
     Dosage: 80 MG, ORAL
     Route: 048
  4. FLOXACILLIN SODIUM [Suspect]
     Indication: ARTHRITIS BACTERIAL
     Dosage: 8 GM, INTRAMUSCULAR
     Route: 030
     Dates: start: 20070825, end: 20070827
  5. INDAPAMIDE [Suspect]
     Indication: DRUG USE FOR UNKNOWN INDICATION
     Dosage: 1.5 MG, ORAL
     Route: 048
  6. RAMIPRIL [Suspect]
     Indication: DRUG USE FOR UNKNOWN INDICATION
     Dosage: 1.3 MG, ORAL
     Route: 048

REACTIONS (5)
  - ANURIA [None]
  - HAEMODIALYSIS [None]
  - HYPOTENSION [None]
  - NEPHRITIS INTERSTITIAL [None]
  - RENAL FAILURE ACUTE [None]
